FAERS Safety Report 14728582 (Version 6)
Quarter: 2019Q2

REPORT INFORMATION
  Report Type: Report from Study
  Country: JP (occurrence: JP)
  Receive Date: 20180406
  Receipt Date: 20190415
  Transmission Date: 20190711
  Serious: Yes (Hospitalization, Other)
  Sender: FDA-Public Use
  Company Number: JP-ACTELION-A-CH2018-170089

PATIENT
  Age: 55 Year
  Sex: Female

DRUGS (16)
  1. PREDNISOLONE. [Concomitant]
     Active Substance: PREDNISOLONE
     Dosage: 40 MG, QD
  2. FUROSEMIDE. [Concomitant]
     Active Substance: FUROSEMIDE
  3. WARFARIN [Concomitant]
     Active Substance: WARFARIN
  4. SPIRONOLACTONE. [Concomitant]
     Active Substance: SPIRONOLACTONE
  5. LANSOPRAZOLE. [Concomitant]
     Active Substance: LANSOPRAZOLE
  6. LIMAPROST ALFADEX [Concomitant]
     Active Substance: LIMAPROST
  7. CRESTOR [Concomitant]
     Active Substance: ROSUVASTATIN CALCIUM
  8. MEDICON [Concomitant]
     Active Substance: DEXTROMETHORPHAN HYDROBROMIDE
  9. PREGABALIN. [Concomitant]
     Active Substance: PREGABALIN
  10. ALFACALCIDOL [Concomitant]
     Active Substance: ALFACALCIDOL
  11. BONALON [Concomitant]
     Active Substance: ALENDRONATE SODIUM
  12. DAIPHEN [Concomitant]
     Active Substance: SULFAMETHOXAZOLE\TRIMETHOPRIM
  13. TRACLEER [Suspect]
     Active Substance: BOSENTAN
     Indication: SKIN ULCER
     Dosage: 62.5 MG, BID
     Route: 048
     Dates: start: 20171120, end: 20180419
  14. PREDNISOLONE. [Concomitant]
     Active Substance: PREDNISOLONE
     Dosage: 30 MG, QD
     Dates: start: 20180114
  15. SARPOGRELATE [Concomitant]
     Active Substance: SARPOGRELATE
  16. BERAPROST NA [Concomitant]
     Active Substance: BERAPROST SODIUM

REACTIONS (7)
  - Hyperuricaemia [Not Recovered/Not Resolved]
  - Oesophageal hypomotility [Recovered/Resolved]
  - Chronic kidney disease [Not Recovered/Not Resolved]
  - Interstitial lung disease [Recovered/Resolved]
  - Dyspnoea [Recovered/Resolved]
  - Eating disorder [Recovered/Resolved]
  - Pneumocystis jirovecii pneumonia [Recovered/Resolved]

NARRATIVE: CASE EVENT DATE: 20171218
